FAERS Safety Report 9769712 (Version 1)
Quarter: 2013Q4

REPORT INFORMATION
  Report Type: Spontaneous
  Country: US (occurrence: US)
  Receive Date: 20131218
  Receipt Date: 20131218
  Transmission Date: 20140711
  Serious: No
  Sender: FDA-Public Use
  Company Number: US-VERTEX PHARMACEUTICALS INC-AE-2011-000534

PATIENT
  Sex: Male

DRUGS (3)
  1. INCIVEK [Suspect]
     Indication: HEPATITIS C
     Route: 048
     Dates: start: 20110718
  2. PEGYLATED INTERFERON ALPHA [Concomitant]
     Indication: HEPATITIS C
     Dates: start: 20110718
  3. RIBAVIRIN [Concomitant]
     Indication: HEPATITIS C
     Dates: start: 20110718

REACTIONS (2)
  - Pyrexia [Not Recovered/Not Resolved]
  - Myalgia [Not Recovered/Not Resolved]
